FAERS Safety Report 18214159 (Version 1)
Quarter: 2020Q3

REPORT INFORMATION
  Report Type: Spontaneous
  Country: US (occurrence: US)
  Receive Date: 20200831
  Receipt Date: 20200831
  Transmission Date: 20201103
  Serious: No
  Sender: FDA-Public Use
  Company Number: US-TAKEDA-2020TUS036083

PATIENT
  Age: 79 Year
  Sex: Female
  Weight: 68.48 kg

DRUGS (1)
  1. NINLARO [Suspect]
     Active Substance: IXAZOMIB CITRATE
     Indication: PLASMA CELL MYELOMA
     Dosage: 3 MILLIGRAM
     Route: 048
     Dates: start: 20180314

REACTIONS (3)
  - Full blood count decreased [Unknown]
  - Fall [Unknown]
  - Lip injury [Unknown]

NARRATIVE: CASE EVENT DATE: 20200824
